FAERS Safety Report 9251163 (Version 2)
Quarter: 2014Q1

REPORT INFORMATION
  Report Type: Spontaneous
  Country: US (occurrence: None)
  Receive Date: 20130305
  Receipt Date: 20140306
  Transmission Date: 20141002
  Serious: Yes (Hospitalization, Other)
  Sender: FDA-Public Use
  Company Number: 163-21880-12100034

PATIENT
  Age: 73 Year
  Sex: Female
  Weight: 72.6 kg

DRUGS (11)
  1. REVLIMID [Suspect]
     Indication: MYELODYSPLASTIC SYNDROME
     Dosage: 21 IN 21 D
     Route: 048
     Dates: start: 200708, end: 200709
  2. REVLIMID [Suspect]
     Indication: LYMPHOMA
     Dosage: 21 IN 21 D
     Route: 048
     Dates: start: 200708, end: 200709
  3. LOW DOSE ASA (ACETYLSALICYLIC ACID) [Concomitant]
  4. ATENOLOL (ATENOLOL) [Concomitant]
  5. GABAPENTIN (GABAPENTIN) [Concomitant]
  6. NAMENDA (MEMANTINE HYDROCHLORIDE) [Concomitant]
  7. VITAMIN B12 (CYANOCOBALAMIN) [Concomitant]
  8. VITAMIN E (TOCOPHEROL) [Concomitant]
  9. GALANTAMINE HBR (GALANTAMINE HYDROBROMIDE) [Concomitant]
  10. LEVOTHYROXINE SODIUM [Concomitant]
  11. VITAMIN D2 (ERGOCALCIFEROL) [Concomitant]

REACTIONS (8)
  - Bone marrow failure [None]
  - Pneumonia [None]
  - Pulmonary thrombosis [None]
  - Red blood cell count decreased [None]
  - White blood cell count decreased [None]
  - Neutropenia [None]
  - Pyrexia [None]
  - Sepsis [None]
